FAERS Safety Report 16848211 (Version 1)
Quarter: 2019Q3

REPORT INFORMATION
  Report Type: Other
  Country: DE (occurrence: DE)
  Receive Date: 20190925
  Receipt Date: 20190925
  Transmission Date: 20191005
  Serious: Yes (Other)
  Sender: FDA-Public Use
  Company Number: DE-LUPIN PHARMACEUTICALS INC.-2019-06044

PATIENT
  Age: 1 Day
  Sex: Male
  Weight: 4.46 kg

DRUGS (4)
  1. SERTRALINE [Suspect]
     Active Substance: SERTRALINE HYDROCHLORIDE
     Indication: BIPOLAR DISORDER
     Dosage: 50 MILLIGRAM, BID, 100 (MG/D (BIS 50))
     Route: 064
     Dates: start: 20180322
  2. QUETIAPINE FUMARATE. [Suspect]
     Active Substance: QUETIAPINE FUMARATE
     Indication: BIPOLAR DISORDER
     Dosage: 200 MILLIGRAM, BID, 400 (MG/D (200-0-200)) 2 SEPARATED DOSES
     Route: 064
     Dates: start: 20180322
  3. FOLIO [CYANOCOBALAMIN;FOLIC ACID] [Concomitant]
     Indication: PROPHYLAXIS OF NEURAL TUBE DEFECT
     Dosage: UNK
     Route: 064
     Dates: start: 20180322, end: 20181219
  4. INSULIN [Concomitant]
     Active Substance: INSULIN NOS
     Indication: GESTATIONAL DIABETES
     Dosage: UNK
     Route: 064

REACTIONS (4)
  - Large for dates baby [Unknown]
  - Hypotonia neonatal [Recovered/Resolved]
  - Respiratory disorder neonatal [Recovered/Resolved]
  - Foetal exposure during pregnancy [Unknown]

NARRATIVE: CASE EVENT DATE: 20181219
